FAERS Safety Report 24442247 (Version 2)
Quarter: 2024Q4

REPORT INFORMATION
  Report Type: Report from Study
  Country: US (occurrence: US)
  Receive Date: 20241016
  Receipt Date: 20241017
  Transmission Date: 20250114
  Serious: No
  Sender: ROCHE
  Company Number: US-ROCHE-3537931

PATIENT
  Age: 28 Year
  Sex: Male
  Weight: 64.7 kg

DRUGS (4)
  1. HEMLIBRA [Suspect]
     Active Substance: EMICIZUMAB-KXWH
     Indication: Factor VIII deficiency
     Dosage: STRENGTH 150MG/ML, 193.5MG IS EQUALS TO 1.29ML, INJECT 0.67ML (100.5MG)
     Route: 058
  2. CELECOXIB [Concomitant]
     Active Substance: CELECOXIB
  3. CITALOPRAM [Concomitant]
     Active Substance: CITALOPRAM
  4. TRANEXAMIC ACID [Concomitant]
     Active Substance: TRANEXAMIC ACID

REACTIONS (6)
  - Arthralgia [Unknown]
  - Back pain [Unknown]
  - Anxiety [Unknown]
  - Depression [Unknown]
  - Attention deficit hyperactivity disorder [Unknown]
  - Autism spectrum disorder [Unknown]
